FAERS Safety Report 16654686 (Version 2)
Quarter: 2019Q3

REPORT INFORMATION
  Report Type: Spontaneous
  Country: IE (occurrence: IE)
  Receive Date: 20190801
  Receipt Date: 20190812
  Transmission Date: 20191004
  Serious: Yes (Life-Threatening, Other)
  Sender: FDA-Public Use
  Company Number: IE-SUN PHARMACEUTICAL INDUSTRIES LTD-2019RR-215875

PATIENT
  Age: 69 Year
  Sex: Female

DRUGS (7)
  1. CODEINE (G) [Concomitant]
     Dosage: 60 MILLIGRAM, QID, DOSE INCREASED
     Route: 065
     Dates: start: 20190523
  2. IMODIUM [Interacting]
     Active Substance: LOPERAMIDE HYDROCHLORIDE
     Indication: GASTROINTESTINAL STOMA COMPLICATION
     Dosage: DURATION OF USE; AT LEAST 5 WEEKS AS IN-PATIENT, PROBABLY ADMITTED ON THIS TREATMENT
     Route: 048
  3. CODEINE (G) [Concomitant]
     Indication: GASTROINTESTINAL STOMA COMPLICATION
     Dosage: 60 MILLIGRAM, TID, DOSE INCREASED
     Route: 065
     Dates: start: 20190520
  4. LOPERAMIDE (G) [Interacting]
     Active Substance: LOPERAMIDE
     Indication: GASTROINTESTINAL STOMA COMPLICATION
     Dosage: DURATION OF USE; TAKING THIS FOR 5 WEEKS PRECEDING THE EVENT POSSIBLY ADMITTED ON THIS THERAPY - ...
     Route: 048
  5. CODEINE (G) [Concomitant]
     Dosage: 30 MILLIGRAM, TID, PRESCRIBED DOSE ON ADMISSION ON 19/MAY/2019
     Route: 065
  6. CLARITHROMYCIN. [Suspect]
     Active Substance: CLARITHROMYCIN
     Indication: PNEUMONIA
     Dosage: 500 MILLIGRAM, BID
     Route: 065
     Dates: start: 20190605, end: 20190611
  7. KLACID IV [Suspect]
     Active Substance: CLARITHROMYCIN
     Indication: PRODUCT USED FOR UNKNOWN INDICATION
     Dosage: 500 MILLIGRAM, BID, BATCH EXPIRY NOV/2020
     Route: 042
     Dates: start: 20190601, end: 20190605

REACTIONS (5)
  - Cardiac arrest [Recovered/Resolved]
  - Drug interaction [Recovered/Resolved]
  - Hypertension [Unknown]
  - Torsade de pointes [Recovered/Resolved]
  - Ventricular fibrillation [Recovered/Resolved]

NARRATIVE: CASE EVENT DATE: 20190611
